FAERS Safety Report 19075726 (Version 1)
Quarter: 2021Q1

REPORT INFORMATION
  Report Type: Spontaneous
  Country: IS (occurrence: IS)
  Receive Date: 20210331
  Receipt Date: 20210331
  Transmission Date: 20210420
  Serious: Yes (Hospitalization)
  Sender: FDA-Public Use
  Company Number: IS-ROCHE-2795088

PATIENT
  Age: 43 Year
  Sex: Male

DRUGS (2)
  1. DEXAMETASON [Concomitant]
     Active Substance: DEXAMETHASONE
     Indication: MALIGNANT NEOPLASM OF RENAL PELVIS
     Dosage: 2 MG X 1
  2. TECENTRIQ [Suspect]
     Active Substance: ATEZOLIZUMAB
     Indication: MALIGNANT NEOPLASM OF RENAL PELVIS
     Dosage: 1200 MG X 1 INTRAVENOUSLY
     Route: 041
     Dates: start: 20210209

REACTIONS (3)
  - Cortisol decreased [Not Recovered/Not Resolved]
  - Malaise [Not Recovered/Not Resolved]
  - Dysphoria [Not Recovered/Not Resolved]

NARRATIVE: CASE EVENT DATE: 20210222
